FAERS Safety Report 4988455-5 (Version None)
Quarter: 2006Q2

REPORT INFORMATION
  Report Type: 
  Country: None (occurrence: None)
  Receive Date: 20060502
  Receipt Date: 20060424
  Transmission Date: 20061013
  Serious: Yes (Hospitalization)
  Sender: FDA-Public Use
  Company Number: US-SANOFI-SYNTHELABO-F03200600087

PATIENT
  Sex: Male
  Weight: 82 kg

DRUGS (7)
  1. OXALIPLATIN [Suspect]
     Indication: OESOPHAGEAL CARCINOMA
     Dosage: 199 MG (100 MG/M2, DAYS 1 + 15)
     Route: 042
     Dates: start: 20060329, end: 20060329
  2. FLUOROURACIL [Suspect]
     Indication: OESOPHAGEAL CARCINOMA
     Dosage: 4378 MG (2200 MG/M2 OVER 48 HOURS ON DAYS 1 + 15)
     Route: 042
     Dates: start: 20060329, end: 20060331
  3. DIOVAN [Concomitant]
     Route: 048
  4. ZOCOR [Concomitant]
     Route: 048
  5. PROPRANOLOL [Concomitant]
     Route: 048
  6. NEXIUM [Concomitant]
     Route: 048
  7. DICYCLOMINE [Concomitant]
     Route: 048

REACTIONS (2)
  - HYPERLIPIDAEMIA [None]
  - MYOCARDIAL ISCHAEMIA [None]
